FAERS Safety Report 8392495-6 (Version None)
Quarter: 2012Q2

REPORT INFORMATION
  Report Type: 
  Country: None (occurrence: None)
  Receive Date: 20120529
  Receipt Date: 20120430
  Transmission Date: 20120825
  Serious: Yes (Other)
  Sender: FDA-Public Use
  Company Number: RO-ROCHE-1066380

PATIENT
  Sex: Female
  Weight: 96 kg

DRUGS (3)
  1. BLINDED ALISPORIVIR [Suspect]
     Indication: HEPATITIS C
     Dosage: THE DOSE WITHALISPORIVIR WAS HELD
     Dates: start: 20110811, end: 20110927
  2. PEGASYS [Suspect]
     Indication: HEPATITIS C
     Dates: start: 20110811, end: 20110928
  3. COPEGUS [Suspect]
     Indication: HEPATITIS C

REACTIONS (3)
  - CONCOMITANT DISEASE PROGRESSION [None]
  - LOSS OF CONSCIOUSNESS [None]
  - HYPERTENSION [None]
